FAERS Safety Report 22652029 (Version 1)
Quarter: 2023Q2

REPORT INFORMATION
  Report Type: Other
  Country: IT (occurrence: IT)
  Receive Date: 20230628
  Receipt Date: 20230628
  Transmission Date: 20230721
  Serious: Yes (Hospitalization, Other)
  Sender: FDA-Public Use
  Company Number: None

PATIENT

DRUGS (2)
  1. TAFASITAMAB [Suspect]
     Active Substance: TAFASITAMAB
     Indication: B-cell lymphoma recurrent
     Dosage: TAFASITAMAB REGIMEN: DAY 1, 8, 15, 22, 29; THEN 1, 8, 15, 22
     Route: 042
     Dates: start: 20230320, end: 20230502
  2. LENALIDOMIDE [Suspect]
     Active Substance: LENALIDOMIDE
     Indication: B-cell lymphoma
     Dosage: 1-21 DAYS, 1 TABLET/DAY, EVERY 28 DAYS
     Route: 065
     Dates: start: 20230320, end: 20230502

REACTIONS (1)
  - Clostridial sepsis [Recovered/Resolved]

NARRATIVE: CASE EVENT DATE: 20230502
